FAERS Safety Report 8380507-5 (Version None)
Quarter: 2012Q2

REPORT INFORMATION
  Report Type: 
  Country: None (occurrence: None)
  Receive Date: 20120523
  Receipt Date: 20120518
  Transmission Date: 20120825
  Serious: Yes (Hospitalization)
  Sender: FDA-Public Use
  Company Number: JP-GLAXOSMITHKLINE-B0802941A

PATIENT
  Sex: Female

DRUGS (4)
  1. CLONAZEPAM [Concomitant]
     Route: 048
     Dates: end: 20120507
  2. SULPIRIDE [Concomitant]
     Route: 048
     Dates: end: 20120507
  3. LAMICTAL [Suspect]
     Indication: BIPOLAR DISORDER
     Dosage: 50MG PER DAY
     Route: 048
     Dates: start: 20120401, end: 20120507
  4. CHINESE MEDICINE [Concomitant]
     Route: 048
     Dates: end: 20120507

REACTIONS (4)
  - DRUG RASH WITH EOSINOPHILIA AND SYSTEMIC SYMPTOMS [None]
  - INFECTION [None]
  - PYREXIA [None]
  - RASH [None]
